FAERS Safety Report 5338013-8 (Version None)
Quarter: 2007Q2

REPORT INFORMATION
  Report Type: 
  Country: None (occurrence: None)
  Receive Date: 20070327
  Receipt Date: 20070131
  Transmission Date: 20071010
  Serious: Yes (Hospitalization)
  Sender: FDA-Public Use
  Company Number: 235387

PATIENT
  Age: 63 Year
  Sex: Male

DRUGS (9)
  1. AVASTIN [Suspect]
     Dosage: 1635 MG, INTRAVENOUS
     Route: 042
     Dates: start: 20060922, end: 20061221
  2. CARBOPLATIN [Concomitant]
  3. TAXOTERE [Concomitant]
  4. LASIX [Concomitant]
  5. LOTREL [Concomitant]
  6. GLUCOVANCE [Concomitant]
  7. POTASSIUM CHLORIDE [Concomitant]
  8. XANAX [Concomitant]
  9. ASPIRIN [Concomitant]

REACTIONS (1)
  - EPISTAXIS [None]
